FAERS Safety Report 7615590-5 (Version None)
Quarter: 2011Q3

REPORT INFORMATION
  Report Type: 
  Country: None (occurrence: None)
  Receive Date: 20110708
  Receipt Date: 20110624
  Transmission Date: 20111222
  Serious: No
  Sender: FDA-Public Use
  Company Number: FK201101249

PATIENT
  Age: 65 Year
  Sex: Female

DRUGS (7)
  1. LIDOCAINE [Concomitant]
  2. CEFOTETAN [Concomitant]
  3. CIPROFLOXACIN [Concomitant]
  4. MIDAZOLAM HCL [Concomitant]
  5. FENTANYL [Concomitant]
  6. PROPOFOL [Suspect]
     Indication: PRODUCT USED FOR UNKNOWN INDICATION
     Dates: start: 20110518, end: 20110518
  7. PROPOFOL [Suspect]
     Indication: PRODUCT USED FOR UNKNOWN INDICATION
     Dates: start: 20110523, end: 20110523

REACTIONS (1)
  - MUSCLE CONTRACTIONS INVOLUNTARY [None]
